FAERS Safety Report 9436958 (Version 1)
Quarter: 2013Q3

REPORT INFORMATION
  Report Type: Spontaneous
  Country: BR (occurrence: BR)
  Receive Date: 20130802
  Receipt Date: 20130802
  Transmission Date: 20140515
  Serious: Yes (Other)
  Sender: FDA-Public Use
  Company Number: BR-BRISTOL-MYERS SQUIBB COMPANY-19154608

PATIENT
  Age: 48 Year
  Sex: Male
  Weight: 99 kg

DRUGS (2)
  1. ONGLYZA TABS 5 MG [Suspect]
     Indication: TYPE 2 DIABETES MELLITUS
     Dosage: TAKING 2.5MG IN MORNING AND 2.5MG IN NIGHT.
     Route: 048
  2. TENORETIC [Concomitant]

REACTIONS (3)
  - Burns third degree [Recovered/Resolved]
  - Intentional drug misuse [Unknown]
  - Blood glucose increased [Unknown]
